FAERS Safety Report 6153611-X (Version None)
Quarter: 2009Q2

REPORT INFORMATION
  Report Type: 
  Country: None (occurrence: None)
  Receive Date: 20090413
  Receipt Date: 20090401
  Transmission Date: 20091009
  Serious: Yes (Other)
  Sender: FDA-Public Use
  Company Number: TR-PFIZER INC-2009196457

PATIENT

DRUGS (4)
  1. VARENICLINE TARTRATE [Suspect]
     Dosage: UNK
     Route: 048
     Dates: start: 20090325
  2. ALPRAZOLAM [Concomitant]
     Dosage: UNK
  3. VENLAFAXINE [Concomitant]
     Dosage: UNK
  4. PROPRANOLOL [Concomitant]
     Indication: HYPERTENSION
     Dosage: UNK

REACTIONS (8)
  - ANXIETY [None]
  - DYSARTHRIA [None]
  - FATIGUE [None]
  - HYPERHIDROSIS [None]
  - HYPERTENSION [None]
  - HYPOAESTHESIA [None]
  - PHOTOPSIA [None]
  - PRESYNCOPE [None]
